FAERS Safety Report 9298155 (Version 2)
Quarter: 2013Q4

REPORT INFORMATION
  Report Type: Spontaneous
  Country: US (occurrence: US)
  Receive Date: 20130520
  Receipt Date: 20131114
  Transmission Date: 20140711
  Serious: Yes (Other)
  Sender: FDA-Public Use
  Company Number: US-AMGEN-USASP2013034348

PATIENT
  Age: 58 Year
  Sex: Male
  Weight: 131.5 kg

DRUGS (6)
  1. ENBREL [Suspect]
     Indication: PRODUCT USED FOR UNKNOWN INDICATION
     Dosage: 50 MG, 2 TIMES/WK
     Route: 058
  2. ZYRTEC [Concomitant]
     Dosage: 10 MG, UNK
  3. SUDAFED 12 HOUR [Concomitant]
     Dosage: 120 MG,CR
  4. SYMBICORT [Concomitant]
     Dosage: AER 160-4.5
  5. ALEVE [Concomitant]
     Dosage: 220 MG, UNK
  6. MULTIVITAMINS, PLAIN [Concomitant]
     Dosage: UNK (MENS)

REACTIONS (2)
  - Urinary tract infection [Unknown]
  - Prostatomegaly [Unknown]
